FAERS Safety Report 24296513 (Version 2)
Quarter: 2024Q4

REPORT INFORMATION
  Report Type: Spontaneous
  Country: US (occurrence: US)
  Receive Date: 20240909
  Receipt Date: 20241105
  Transmission Date: 20250115
  Serious: No
  Sender: SANDOZ
  Company Number: US-SANDOZ-SDZ2024US077976

PATIENT
  Sex: Female

DRUGS (1)
  1. ESTRADIOL [Suspect]
     Active Substance: ESTRADIOL
     Indication: Product used for unknown indication
     Dosage: 0.1 MG, QD
     Route: 065
     Dates: start: 20240827

REACTIONS (7)
  - General physical health deterioration [Recovering/Resolving]
  - Fall [Unknown]
  - Brain fog [Recovering/Resolving]
  - Pain [Recovered/Resolved]
  - Balance disorder [Recovering/Resolving]
  - Malaise [Unknown]
  - Fatigue [Unknown]
